FAERS Safety Report 11686089 (Version 2)
Quarter: 2015Q4

REPORT INFORMATION
  Report Type: Spontaneous
  Country: US (occurrence: US)
  Receive Date: 20151030
  Receipt Date: 20151114
  Transmission Date: 20160304
  Serious: No
  Sender: FDA-Public Use
  Company Number: US-BRISTOL-MYERS SQUIBB COMPANY-BMS-2015-073084

PATIENT
  Sex: Male
  Weight: 122.45 kg

DRUGS (2)
  1. ABILIFY [Suspect]
     Active Substance: ARIPIPRAZOLE
     Indication: BIPOLAR DISORDER
     Dosage: 15 MG, UNK
     Route: 048
  2. ABILIFY [Suspect]
     Active Substance: ARIPIPRAZOLE
     Indication: SCHIZOAFFECTIVE DISORDER
     Dosage: 20 MG, QD
     Route: 048

REACTIONS (7)
  - Weight decreased [Recovered/Resolved]
  - Lethargy [Unknown]
  - Peripheral venous disease [Unknown]
  - Arthralgia [Not Recovered/Not Resolved]
  - Oedema [Unknown]
  - Insomnia [Unknown]
  - Off label use [Unknown]
